FAERS Safety Report 6713451-7 (Version None)
Quarter: 2010Q2

REPORT INFORMATION
  Report Type: 
  Country: None (occurrence: None)
  Receive Date: 20100503
  Receipt Date: 20100419
  Transmission Date: 20101027
  Serious: Yes (Death, Life-Threatening, Other)
  Sender: FDA-Public Use
  Company Number: A-CH2010-35415

PATIENT
  Age: 7 Month
  Sex: Male
  Weight: 4 kg

DRUGS (12)
  1. TRACLEER [Suspect]
     Indication: PULMONARY ARTERIAL HYPERTENSION
     Dosage: 3.13 MG, BID, ORAL
     Route: 048
     Dates: start: 20080513, end: 20090103
  2. PREDNISOLONE [Suspect]
  3. EPOPROSTENOL SODIUM [Concomitant]
  4. SILDENAFIL CITRATE [Concomitant]
  5. FUROSEMIDE [Concomitant]
  6. DIGOXIN [Concomitant]
  7. SPIRONOLACTONE [Concomitant]
  8. BUNAZOSIN (BUNAZOSIN) [Concomitant]
  9. PIMOBENDAN (PIMOBENDAN) [Concomitant]
  10. NITROGLYCERIN [Concomitant]
  11. TRANILAST (TRANILAST) [Concomitant]
  12. OXYGEN (OXYGEN) [Concomitant]

REACTIONS (10)
  - CARDIAC FAILURE [None]
  - CONDITION AGGRAVATED [None]
  - PULMONARY CONGESTION [None]
  - PULMONARY HAEMORRHAGE [None]
  - PULMONARY VEIN OCCLUSION [None]
  - PULMONARY VEIN STENOSIS [None]
  - RESPIRATORY FAILURE [None]
  - RESPIRATORY SYNCYTIAL VIRUS BRONCHIOLITIS [None]
  - RIGHT VENTRICULAR SYSTOLIC PRESSURE INCREASED [None]
  - VENTRICULAR SEPTAL DEFECT [None]
